FAERS Safety Report 9294812 (Version 1)
Quarter: 2013Q1

REPORT INFORMATION
  Report Type: Spontaneous
  Country: US (occurrence: None)
  Receive Date: 20121227
  Receipt Date: 20121227
  Transmission Date: 20140127
  Serious: Yes (Hospitalization)
  Sender: FDA-Public Use
  Company Number: PHEH2012US009159

PATIENT
  Age: 15 Year
  Sex: Female

DRUGS (1)
  1. EXJADE (*CGP 72670*) DISPERSIBLE TABLET [Suspect]
     Indication: IRON OVERLOAD
     Route: 048
     Dates: start: 201005, end: 201202

REACTIONS (2)
  - Sickle cell anaemia with crisis [None]
  - Pain [None]
